FAERS Safety Report 23956172 (Version 1)
Quarter: 2024Q2

REPORT INFORMATION
  Report Type: Spontaneous
  Country: US (occurrence: US)
  Receive Date: 20240610
  Receipt Date: 20240610
  Transmission Date: 20240715
  Serious: Yes (Life-Threatening)
  Sender: FDA-Public Use
  Company Number: US-INFO-20240115

PATIENT
  Age: 84 Year
  Sex: Male

DRUGS (25)
  1. NOREPINEPHRINE BITARTRATE [Suspect]
     Active Substance: NOREPINEPHRINE BITARTRATE
     Indication: Hypotension
     Dosage: ()
     Route: 041
  2. TYLENOL [Concomitant]
     Active Substance: ACETAMINOPHEN
     Dosage: AS NECESSARY
  3. ASPIRIN [Concomitant]
     Active Substance: ASPIRIN
  4. ATROPINE [Concomitant]
     Active Substance: ATROPINE\ATROPINE SULFATE
     Dosage: AS NECESSARY
  5. CEFEPIME [Concomitant]
     Active Substance: CEFEPIME HYDROCHLORIDE
  6. DEXTROSE [Concomitant]
     Active Substance: DEXTROSE\DEXTROSE MONOHYDRATE
  7. DOBUTAMINE [Concomitant]
     Active Substance: DOBUTAMINE HYDROCHLORIDE
     Dosage: CONTINUOUS
  8. GLUCAGON [Concomitant]
     Active Substance: GLUCAGON\GLUCAGON HYDROCHLORIDE\WATER
     Dosage: AS NECESSARY
  9. HYDRALAZINE [Concomitant]
     Active Substance: HYDRALAZINE HYDROCHLORIDE
     Dosage: AS NECESSARY
  10. HYDROMORPHONE [Concomitant]
     Active Substance: HYDROMORPHONE
     Dosage: AS NECESSARY
  11. INSULIN NOS [Concomitant]
     Active Substance: INSULIN NOS
  12. MAGNESIUM SULFATE [Concomitant]
     Active Substance: MAGNESIUM SULFATE\MAGNESIUM SULFATE HEPTAHYDRATE
     Dosage: AS NECESSARY
  13. MILRINONE [Concomitant]
     Active Substance: MILRINONE
     Dosage: CONTINUOUS ()
  14. MORPHINE [Concomitant]
     Active Substance: MORPHINE
     Dosage: AS NECESSARY
  15. NALOXONE [Concomitant]
     Active Substance: NALOXONE
     Dosage: AS NECESSARY
  16. NITROGLYCERIN [Concomitant]
     Active Substance: NITROGLYCERIN
     Dosage: AS NECESSARY
  17. PROTONIX [Concomitant]
     Active Substance: PANTOPRAZOLE SODIUM
  18. POTASSIUM CHLORIDE [Concomitant]
     Active Substance: POTASSIUM CHLORIDE
     Dosage: AS NECESSARY
  19. AMIODARONE [Concomitant]
     Active Substance: AMIODARONE
     Dosage: CONTINUOUS
  20. EPINEPHRINE [Concomitant]
     Active Substance: EPINEPHRINE
     Dosage: CONTINUOUS ()
  21. FENTANYL [Concomitant]
     Active Substance: FENTANYL\FENTANYL CITRATE
     Dosage: CONTINUOUS
  22. HEPARIN [Concomitant]
     Active Substance: HEPARIN SODIUM
     Dosage: CONTINUOUS
  23. MIDAZOLAM [Concomitant]
     Active Substance: MIDAZOLAM
     Dosage: CONTINUOUS
  24. TICAGRELOR [Concomitant]
     Active Substance: TICAGRELOR
  25. VASOPRESSIN [Concomitant]
     Active Substance: VASOPRESSIN
     Dosage: CONTINUOUS

REACTIONS (3)
  - Product packaging issue [Unknown]
  - Drug dose omission by device [Unknown]
  - Blood pressure decreased [Unknown]

NARRATIVE: CASE EVENT DATE: 20240505
